FAERS Safety Report 6915394-2 (Version None)
Quarter: 2010Q3

REPORT INFORMATION
  Report Type: 
  Country: None (occurrence: None)
  Receive Date: 20100809
  Receipt Date: 20100407
  Transmission Date: 20110219
  Serious: No
  Sender: FDA-Public Use
  Company Number: US-ABBOTT-10P-163-0638200-00

PATIENT
  Sex: Female
  Weight: 143.46 kg

DRUGS (2)
  1. DEPAKOTE ER [Suspect]
     Indication: DEPRESSION
     Dates: start: 20090901, end: 20100101
  2. SERAQUEL [Concomitant]
     Indication: DEPRESSION

REACTIONS (2)
  - FATIGUE [None]
  - PANIC ATTACK [None]
